FAERS Safety Report 15699387 (Version 1)
Quarter: 2018Q4

REPORT INFORMATION
  Report Type: Other
  Country: DE (occurrence: DE)
  Receive Date: 20181207
  Receipt Date: 20181207
  Transmission Date: 20190205
  Serious: Yes (Hospitalization, Other)
  Sender: FDA-Public Use
  Company Number: DE-MACLEODS PHARMACEUTICALS US LTD-MAC2018019056

PATIENT

DRUGS (9)
  1. VALSARTAN. [Concomitant]
     Active Substance: VALSARTAN
     Indication: CARDIAC FAILURE
     Dosage: UNK
     Route: 048
  2. ZEMPLAR [Concomitant]
     Active Substance: PARICALCITOL
     Indication: VITAMIN SUPPLEMENTATION
     Dosage: UNK
     Route: 048
  3. FUROSEMIDE. [Concomitant]
     Active Substance: FUROSEMIDE
     Indication: PROPHYLAXIS
     Dosage: UNK
     Route: 048
  4. ALLOPURINOL. [Concomitant]
     Active Substance: ALLOPURINOL
     Indication: BLOOD URIC ACID INCREASED
     Dosage: UNK
     Route: 065
  5. METOCLOPRAMIDE. [Concomitant]
     Active Substance: METOCLOPRAMIDE
     Indication: PROPHYLAXIS OF NAUSEA AND VOMITING
     Dosage: UNK UNK, PRN
     Route: 048
  6. SILDENAFIL. [Suspect]
     Active Substance: SILDENAFIL
     Indication: PULMONARY ARTERIAL HYPERTENSION
     Dosage: 60 MILLIGRAM, QD
     Route: 048
     Dates: start: 20180528, end: 20180604
  7. NOVALGIN (METAMIZOLE SODIUM) [Concomitant]
     Active Substance: METAMIZOLE SODIUM
     Indication: PAIN PROPHYLAXIS
     Dosage: UNK UNK, PRN
     Route: 048
  8. OPSUMIT [Suspect]
     Active Substance: MACITENTAN
     Indication: PULMONARY ARTERIAL HYPERTENSION
     Dosage: 10 MILLIGRAM, QD
     Route: 048
     Dates: start: 201405
  9. PANTOPRAZOLE [Concomitant]
     Active Substance: PANTOPRAZOLE
     Indication: PROPHYLAXIS
     Dosage: UNK, PRN
     Route: 048

REACTIONS (12)
  - Blood creatinine increased [Recovered/Resolved]
  - Dry mouth [Unknown]
  - Headache [Unknown]
  - Pulmonary arterial hypertension [Unknown]
  - Urosepsis [Recovered/Resolved]
  - Diarrhoea [Unknown]
  - C-reactive protein increased [Recovered/Resolved]
  - Dialysis [Unknown]
  - Concomitant disease progression [Recovered/Resolved]
  - End stage renal disease [Recovered/Resolved]
  - Creatinine renal clearance decreased [Recovered/Resolved]
  - Disease progression [Unknown]

NARRATIVE: CASE EVENT DATE: 20180614
